FAERS Safety Report 6979927-2 (Version None)
Quarter: 2010Q3

REPORT INFORMATION
  Report Type: 
  Country: None (occurrence: None)
  Receive Date: 20100914
  Receipt Date: 20100903
  Transmission Date: 20110219
  Serious: No
  Sender: FDA-Public Use
  Company Number: US-US-EMD SERONO, INC.-7009413

PATIENT
  Sex: Female

DRUGS (3)
  1. REBIF [Suspect]
     Indication: MULTIPLE SCLEROSIS
     Route: 058
     Dates: start: 20070416
  2. REBIF [Suspect]
     Route: 058
  3. COUMADIN [Concomitant]
     Indication: ATRIAL FIBRILLATION
     Dates: start: 20030101

REACTIONS (2)
  - MULTIPLE SCLEROSIS RELAPSE [None]
  - PUSTULAR PSORIASIS [None]
